FAERS Safety Report 5093994-5 (Version None)
Quarter: 2006Q3

REPORT INFORMATION
  Report Type: 
  Country: None (occurrence: None)
  Receive Date: 20060728
  Receipt Date: 20060605
  Transmission Date: 20061208
  Serious: No
  Sender: FDA-Public Use
  Company Number: 253838

PATIENT
  Age: 55 Year
  Sex: Male
  Weight: 70.3 kg

DRUGS (4)
  1. LEVEMIR [Suspect]
     Indication: INSULIN-REQUIRING TYPE II DIABETES MELLITUS
     Dosage: 25 IU, QD, SUBCUTANEOUS
     Route: 058
     Dates: start: 20060601
  2. NOVOLOG FLEXPEN (INSULIN ASPART) [Suspect]
     Indication: INSULIN-REQUIRING TYPE II DIABETES MELLITUS
     Dosage: SLIDING SCALE IU, QID, SUBCUTANEOUS
     Route: 058
     Dates: start: 20060601
  3. NOVOFINE 31 (NEEDLE) [Concomitant]
  4. AVANDIA [Concomitant]

REACTIONS (1)
  - INJECTION SITE BRUISING [None]
